FAERS Safety Report 12885754 (Version 3)
Quarter: 2016Q4

REPORT INFORMATION
  Report Type: Spontaneous
  Country: IT (occurrence: IT)
  Receive Date: 20161026
  Receipt Date: 20161114
  Transmission Date: 20170207
  Serious: Yes (Death)
  Sender: FDA-Public Use
  Company Number: IT-EISAI MEDICAL RESEARCH-EC-2016-021632

PATIENT
  Age: 61 Year
  Sex: Female
  Weight: 56 kg

DRUGS (1)
  1. HALAVEN [Suspect]
     Active Substance: ERIBULIN MESYLATE
     Indication: BREAST CANCER
     Route: 042
     Dates: start: 2016, end: 2016

REACTIONS (3)
  - Dehydration [Fatal]
  - Febrile neutropenia [Fatal]
  - Mucosal inflammation [Fatal]

NARRATIVE: CASE EVENT DATE: 20161009
